FAERS Safety Report 10602036 (Version 1)
Quarter: 2014Q4

REPORT INFORMATION
  Report Type: Spontaneous
  Country: TR (occurrence: TR)
  Receive Date: 20141124
  Receipt Date: 20141124
  Transmission Date: 20150529
  Serious: Yes (Life-Threatening, Hospitalization)
  Sender: FDA-Public Use
  Company Number: TR-ASTRAZENECA-2014SE86822

PATIENT
  Age: 31 Year
  Sex: Female

DRUGS (2)
  1. ARTICAINE [Suspect]
     Active Substance: ARTICAINE
     Dosage: 1/100 DILUTION
     Route: 023
  2. LIDOCAINE. [Suspect]
     Active Substance: LIDOCAINE
     Dosage: 1/100 DILUTION
     Route: 023

REACTIONS (4)
  - Sensorimotor disorder [Recovered/Resolved]
  - Kounis syndrome [Recovered/Resolved]
  - Myocardial infarction [Recovered/Resolved]
  - Respiratory arrest [Recovered/Resolved]
